FAERS Safety Report 5902382-8 (Version None)
Quarter: 2008Q3

REPORT INFORMATION
  Report Type: 
  Country: None (occurrence: None)
  Receive Date: 20080929
  Receipt Date: 20080918
  Transmission Date: 20090109
  Serious: Yes (Other)
  Sender: FDA-Public Use
  Company Number: NO-ASTRAZENECA-2008SE04390

PATIENT
  Sex: Male

DRUGS (3)
  1. ZOLADEX [Suspect]
     Indication: PROSTATE CANCER
     Dates: start: 20000101
  2. BETA-BLOCKER [Concomitant]
  3. VERAPAMIL [Concomitant]

REACTIONS (4)
  - BLOOD CREATINE PHOSPHOKINASE INCREASED [None]
  - MUSCLE ATROPHY [None]
  - MUSCULAR WEAKNESS [None]
  - MYALGIA [None]
